FAERS Safety Report 13418025 (Version 2)
Quarter: 2017Q2

REPORT INFORMATION
  Report Type: Spontaneous
  Country: FI (occurrence: FI)
  Receive Date: 20170406
  Receipt Date: 20170501
  Transmission Date: 20170830
  Serious: Yes (Other)
  Sender: FDA-Public Use
  Company Number: FI-PFIZER INC-2017141551

PATIENT
  Sex: Male

DRUGS (2)
  1. SUTENT [Suspect]
     Active Substance: SUNITINIB MALATE
     Dosage: 37.5 MG, 4 WEEKS ON/2 WEEKS OFF
  2. XGEVA [Suspect]
     Active Substance: DENOSUMAB

REACTIONS (2)
  - Subcutaneous abscess [Unknown]
  - Tooth abscess [Unknown]
